FAERS Safety Report 17480667 (Version 1)
Quarter: 2020Q1

REPORT INFORMATION
  Report Type: Report from Study
  Country: CA (occurrence: CA)
  Receive Date: 20200301
  Receipt Date: 20200301
  Transmission Date: 20200409
  Serious: Yes (Other)
  Sender: FDA-Public Use
  Company Number: PHHY2018CA057943

PATIENT
  Age: 52 Year
  Sex: Male

DRUGS (4)
  1. SANDOSTATIN LAR DEPOT [Suspect]
     Active Substance: OCTREOTIDE ACETATE
     Indication: CARCINOID TUMOUR
     Dosage: 30 MG, QMO
     Route: 030
     Dates: start: 20170815
  2. SUNITINIB [Concomitant]
     Active Substance: SUNITINIB
     Indication: PRODUCT USED FOR UNKNOWN INDICATION
     Dosage: UNK
     Route: 065
  3. AFINITOR [Concomitant]
     Active Substance: EVEROLIMUS
     Indication: CARCINOID TUMOUR
     Dosage: QD
     Route: 048
     Dates: start: 2017, end: 2017
  4. LANTUS [Concomitant]
     Active Substance: INSULIN GLARGINE
     Indication: DIABETES MELLITUS
     Route: 065

REACTIONS (2)
  - Blood pressure diastolic increased [Unknown]
  - Cerebrovascular accident [Recovering/Resolving]

NARRATIVE: CASE EVENT DATE: 20180327
